FAERS Safety Report 9710875 (Version 2)
Quarter: 2013Q4

REPORT INFORMATION
  Report Type: Spontaneous
  Country: US (occurrence: US)
  Receive Date: 20131126
  Receipt Date: 20131126
  Transmission Date: 20140711
  Serious: No
  Sender: FDA-Public Use
  Company Number: US201203005221

PATIENT
  Age: 56 Year
  Sex: Female
  Weight: 78.46 kg

DRUGS (10)
  1. BYDUREON 2MG VIAL + SYRINGE [Suspect]
     Indication: TYPE 2 DIABETES MELLITUS
     Dosage: LOT NO:73229 EXPDT:FEB16
     Route: 058
     Dates: start: 20120219
  2. METFORMIN ER [Concomitant]
     Indication: TYPE 2 DIABETES MELLITUS
     Route: 048
  3. LOSARTAN [Concomitant]
     Indication: PROPHYLAXIS
     Route: 048
  4. OMEPRAZOLE [Concomitant]
     Indication: GASTROOESOPHAGEAL REFLUX DISEASE
     Dosage: 40MG QD
     Route: 048
  5. METAMUCIL [Concomitant]
     Indication: CONSTIPATION
     Route: 048
  6. CHOLESTYRAMINE [Concomitant]
     Dosage: POWDER 4MG 1 SCOOP
  7. BABY ASPIRIN [Concomitant]
  8. VITAMIN D3 [Concomitant]
  9. MULTIVITAMIN [Concomitant]
  10. CALCIUM [Concomitant]

REACTIONS (8)
  - Weight decreased [Unknown]
  - Injection site nodule [Recovering/Resolving]
  - Nausea [Recovering/Resolving]
  - Constipation [Recovering/Resolving]
  - Decreased appetite [Not Recovered/Not Resolved]
  - Injection site rash [Not Recovered/Not Resolved]
  - Injection site pruritus [Not Recovered/Not Resolved]
  - Injection site pain [Unknown]
